FAERS Safety Report 12891238 (Version 1)
Quarter: 2016Q4

REPORT INFORMATION
  Report Type: Spontaneous
  Country: US (occurrence: US)
  Receive Date: 20161026
  Receipt Date: 20161026
  Transmission Date: 20170207
  Serious: Yes (Other)
  Sender: FDA-Public Use
  Company Number: None

PATIENT
  Age: 66 Year
  Sex: Female
  Weight: 99 kg

DRUGS (6)
  1. POTASSIUM [Concomitant]
     Active Substance: POTASSIUM
  2. CANDESARTEN HCTZ [Concomitant]
  3. PREDNISONE QUALITEST [Suspect]
     Active Substance: PREDNISONE
     Indication: POLYMYALGIA RHEUMATICA
     Route: 048
     Dates: start: 20130731, end: 20161022
  4. LOW DOSE ASPIRIN [Concomitant]
     Active Substance: ASPIRIN
  5. MAGNESIUM [Concomitant]
     Active Substance: MAGNESIUM
  6. GENERIC CLARITIN [Concomitant]

REACTIONS (3)
  - Pain [None]
  - Osteoarthritis [None]
  - Weight increased [None]

NARRATIVE: CASE EVENT DATE: 20161022
